FAERS Safety Report 10753869 (Version 8)
Quarter: 2015Q3

REPORT INFORMATION
  Report Type: Spontaneous
  Country: MX (occurrence: MX)
  Receive Date: 20150202
  Receipt Date: 20150820
  Transmission Date: 20151125
  Serious: Yes (Hospitalization, Other)
  Sender: FDA-Public Use
  Company Number: MX-ROCHE-1528053

PATIENT
  Age: 52 Year
  Sex: Female
  Weight: 54 kg

DRUGS (6)
  1. ZELBORAF [Suspect]
     Active Substance: VEMURAFENIB
     Route: 048
     Dates: end: 201501
  2. ZELBORAF [Suspect]
     Active Substance: VEMURAFENIB
     Dosage: 3-0-3
     Route: 048
     Dates: start: 20150213
  3. ZELBORAF [Suspect]
     Active Substance: VEMURAFENIB
     Indication: METASTATIC MALIGNANT MELANOMA
     Dosage: 4 TABLETS IN THE MORNING,4 TABLETS12 HRS LATER
     Route: 048
     Dates: start: 20150113
  4. RIVOTRIL [Suspect]
     Active Substance: CLONAZEPAM
     Indication: INSOMNIA
     Route: 048
     Dates: start: 2012, end: 201502
  5. RIVOTRIL [Suspect]
     Active Substance: CLONAZEPAM
     Route: 048
     Dates: start: 20150728, end: 20150728
  6. AROMASIN [Concomitant]
     Active Substance: EXEMESTANE
     Indication: PROPHYLAXIS
     Route: 048
     Dates: start: 2012

REACTIONS (31)
  - Metastases to lymph nodes [Not Recovered/Not Resolved]
  - Metastases to thorax [Not Recovered/Not Resolved]
  - Acne [Recovered/Resolved]
  - Intervertebral disc protrusion [Not Recovered/Not Resolved]
  - Constipation [Recovered/Resolved]
  - Haemorrhoids [Recovered/Resolved]
  - Muscle spasms [Not Recovered/Not Resolved]
  - Metastases to lung [Recovered/Resolved]
  - Gait disturbance [Recovered/Resolved]
  - Pruritus [Recovered/Resolved]
  - Viral infection [Recovered/Resolved]
  - Movement disorder [Recovered/Resolved]
  - Anaemia [Recovering/Resolving]
  - Weight decreased [Not Recovered/Not Resolved]
  - Oral discomfort [Recovered/Resolved]
  - Haematochezia [Recovered/Resolved]
  - Pain [Recovering/Resolving]
  - Fatigue [Not Recovered/Not Resolved]
  - Off label use [Unknown]
  - Malignant melanoma [Not Recovered/Not Resolved]
  - Erythema [Recovered/Resolved]
  - Skin exfoliation [Recovered/Resolved]
  - Decreased immune responsiveness [Recovered/Resolved]
  - Headache [Recovered/Resolved]
  - Back pain [Recovering/Resolving]
  - Pain in extremity [Recovered/Resolved]
  - Alopecia [Recovering/Resolving]
  - Sunburn [Recovered/Resolved]
  - Diarrhoea [Recovering/Resolving]
  - Lip dry [Recovered/Resolved]
  - Insomnia [Not Recovered/Not Resolved]

NARRATIVE: CASE EVENT DATE: 201312
